FAERS Safety Report 12967646 (Version 7)
Quarter: 2017Q4

REPORT INFORMATION
  Report Type: Spontaneous
  Country: US (occurrence: US)
  Receive Date: 20161123
  Receipt Date: 20171120
  Transmission Date: 20180320
  Serious: Yes (Congenital Anomaly, Other)
  Sender: FDA-Public Use
  Company Number: PHHY2015US131635

PATIENT
  Sex: Male

DRUGS (2)
  1. ZOFRAN [Suspect]
     Active Substance: ONDANSETRON HYDROCHLORIDE
     Indication: FOETAL EXPOSURE DURING PREGNANCY
     Route: 064
  2. ZOFRAN [Suspect]
     Active Substance: ONDANSETRON HYDROCHLORIDE
     Indication: FOETAL EXPOSURE DURING PREGNANCY
     Route: 064

REACTIONS (24)
  - Conductive deafness [Unknown]
  - Speech sound disorder [Unknown]
  - Sleep apnoea syndrome [Unknown]
  - Otitis media chronic [Unknown]
  - Injury [Unknown]
  - External auditory canal atresia [Unknown]
  - Apraxia [Unknown]
  - Upper respiratory tract infection [Unknown]
  - Tympanic membrane perforation [Unknown]
  - Ear infection [Unknown]
  - Otorrhoea [Unknown]
  - Craniosynostosis [Unknown]
  - Foetal exposure during pregnancy [Unknown]
  - Premature baby [Unknown]
  - Speech disorder [Unknown]
  - Dermatitis [Unknown]
  - Scar [Unknown]
  - Anomaly of external ear congenital [Unknown]
  - Developmental delay [Unknown]
  - Eye discharge [Unknown]
  - Otitis externa [Unknown]
  - Adenoidal hypertrophy [Unknown]
  - Microtia [Unknown]
  - Tonsillar hypertrophy [Unknown]

NARRATIVE: CASE EVENT DATE: 20040414
